FAERS Safety Report 10084202 (Version 2)
Quarter: 2014Q2

REPORT INFORMATION
  Report Type: Spontaneous
  Country: US (occurrence: None)
  Receive Date: 20140415
  Receipt Date: 20140423
  Transmission Date: 20141212
  Serious: Yes (Other)
  Sender: FDA-Public Use
  Company Number: ADR-2013-00076

PATIENT
  Sex: Male

DRUGS (1)
  1. BACLOFEN [Suspect]
     Indication: MUSCLE SPASTICITY
     Dosage: DAY

REACTIONS (6)
  - Musculoskeletal pain [None]
  - Neck pain [None]
  - Device malfunction [None]
  - Implant site pain [None]
  - Muscle spasticity [None]
  - Device dislocation [None]
